FAERS Safety Report 14366552 (Version 1)
Quarter: 2018Q1

REPORT INFORMATION
  Report Type: Spontaneous
  Country: US (occurrence: US)
  Receive Date: 20180109
  Receipt Date: 20180109
  Transmission Date: 20180509
  Serious: Yes (Death, Life-Threatening, Hospitalization, Other)
  Sender: FDA-Public Use
  Company Number: US-WEST-WARD PHARMACEUTICALS CORP.-US-H14001-18-00048

PATIENT
  Age: 74 Year
  Sex: Female

DRUGS (16)
  1. PREDNISONE. [Suspect]
     Active Substance: PREDNISONE
     Route: 065
  2. PREDNISONE. [Suspect]
     Active Substance: PREDNISONE
     Route: 065
  3. PREDNISONE. [Suspect]
     Active Substance: PREDNISONE
     Route: 065
  4. PREDNISONE. [Suspect]
     Active Substance: PREDNISONE
     Route: 065
  5. PREDNISONE. [Suspect]
     Active Substance: PREDNISONE
     Route: 065
  6. PREDNISONE. [Suspect]
     Active Substance: PREDNISONE
     Indication: TEMPORAL ARTERITIS
     Route: 065
  7. PREDNISONE. [Suspect]
     Active Substance: PREDNISONE
     Route: 065
  8. PREDNISONE. [Suspect]
     Active Substance: PREDNISONE
     Route: 065
  9. PREDNISONE. [Suspect]
     Active Substance: PREDNISONE
     Route: 065
  10. PREDNISONE. [Suspect]
     Active Substance: PREDNISONE
     Route: 065
  11. PREDNISONE. [Suspect]
     Active Substance: PREDNISONE
     Route: 065
  12. PREDNISONE. [Suspect]
     Active Substance: PREDNISONE
     Route: 065
  13. PREDNISONE. [Suspect]
     Active Substance: PREDNISONE
     Route: 065
  14. PREDNISONE. [Suspect]
     Active Substance: PREDNISONE
     Route: 065
  15. PREDNISONE. [Suspect]
     Active Substance: PREDNISONE
     Route: 065
  16. PREDNISONE. [Suspect]
     Active Substance: PREDNISONE
     Route: 065

REACTIONS (42)
  - Osteoporosis [Unknown]
  - Gastroenteritis viral [Unknown]
  - Balance disorder [Unknown]
  - Disorientation [Unknown]
  - Cardiac failure [Unknown]
  - Pneumothorax [Unknown]
  - Gait disturbance [Unknown]
  - Fatigue [Unknown]
  - Eye pain [Unknown]
  - Lymphocyte count decreased [Unknown]
  - Soft tissue sarcoma [Unknown]
  - Infection [Unknown]
  - Bronchopleural fistula [Unknown]
  - Back pain [Unknown]
  - Cough [Unknown]
  - Aggression [Unknown]
  - Anger [Unknown]
  - Aortic stenosis [Unknown]
  - Pneumonia [Unknown]
  - Osteopenia [Unknown]
  - Asthenia [Unknown]
  - Cushingoid [Unknown]
  - Polymyalgia rheumatica [Unknown]
  - Adenocarcinoma of colon [Unknown]
  - Suicidal ideation [Unknown]
  - Syncope [Unknown]
  - Immunosuppression [Unknown]
  - Non-small cell lung cancer [Unknown]
  - Sepsis [Unknown]
  - Urinary tract infection [Unknown]
  - Condition aggravated [Unknown]
  - Malignant neoplasm of spinal cord [Unknown]
  - Acidosis [Unknown]
  - Oedema [Unknown]
  - Temporal arteritis [Unknown]
  - Memory impairment [Unknown]
  - Depression [Unknown]
  - Septic shock [Unknown]
  - Chronic obstructive pulmonary disease [Unknown]
  - Visual impairment [Unknown]
  - Pain in extremity [Unknown]
  - Confusional state [Unknown]
